FAERS Safety Report 4489915-6 (Version None)
Quarter: 2004Q4

REPORT INFORMATION
  Report Type: 
  Country: None (occurrence: None)
  Receive Date: 20041101
  Receipt Date: 20041028
  Transmission Date: 20050328
  Serious: Yes (Other)
  Sender: FDA-Public Use
  Company Number: PHBS2004BR14395

PATIENT
  Age: 63 Year
  Sex: Male

DRUGS (3)
  1. TRILEPTAL [Suspect]
     Indication: CONVULSION
     Route: 048
  2. URSACOL [Concomitant]
     Indication: HEPATOMEGALY
     Dosage: 300 MG, BID
     Route: 048
  3. RENITEC [Concomitant]
     Indication: HYPERTENSION
     Dosage: 10 MG, BID
     Route: 048

REACTIONS (1)
  - HALLUCINATION [None]
